FAERS Safety Report 21252786 (Version 2)
Quarter: 2023Q2

REPORT INFORMATION
  Report Type: Spontaneous
  Country: FR (occurrence: FR)
  Receive Date: 20220825
  Receipt Date: 20230526
  Transmission Date: 20230722
  Serious: Yes (Hospitalization, Other)
  Sender: FDA-Public Use
  Company Number: FR-Accord-263732

PATIENT
  Age: 64 Year
  Sex: Male
  Weight: 64 kg

DRUGS (10)
  1. OXALIPLATIN [Suspect]
     Active Substance: OXALIPLATIN
     Indication: Product used for unknown indication
     Dosage: 152 MILLIGRAM (152MG, DECREASED TO 148MG, DECREASED TO 140 MG, INFUSION FOR 2 HOURS )
     Route: 065
     Dates: start: 20210611
  2. OXALIPLATIN [Suspect]
     Active Substance: OXALIPLATIN
     Dosage: 140 MILLIGRAM (INTRAVENOUSLY PERFUSED OVER 2 HOURSHOURS )
     Route: 065
     Dates: start: 20220113
  3. LEUCOVORIN CALCIUM [Suspect]
     Active Substance: LEUCOVORIN CALCIUM
     Indication: Product used for unknown indication
     Dosage: UNK
     Route: 065
     Dates: start: 20210611, end: 20211230
  4. LEUCOVORIN CALCIUM [Suspect]
     Active Substance: LEUCOVORIN CALCIUM
     Dosage: UNK
     Route: 065
     Dates: start: 20220113
  5. CREON [Concomitant]
     Active Substance: PANCRELIPASE AMYLASE\PANCRELIPASE LIPASE\PANCRELIPASE PROTEASE
     Indication: Product used for unknown indication
     Dosage: 2 DOSAGE FORM, 3 TIMES A DAY (AT THE DOSE OF 2 CAPSULES, THREE TIMES DAILY )
     Route: 065
  6. IMODIUM [Concomitant]
     Active Substance: LOPERAMIDE HYDROCHLORIDE
     Indication: Product used for unknown indication
     Dosage: UNK(IF NEEDED )
     Route: 065
  7. HERBALS\PLANTAGO OVATA SEED [Concomitant]
     Active Substance: HERBALS\PLANTAGO OVATA SEED
     Indication: Product used for unknown indication
     Dosage: UNK, ONCE A DAY (AT THE DOSE OF 1 TO 2 SACHET DAILY )
     Route: 065
  8. LANTUS [Concomitant]
     Active Substance: INSULIN GLARGINE
     Indication: Product used for unknown indication
     Dosage: 8 INTERNATIONAL UNIT (IN THE MORNING )
     Route: 065
  9. METFORMIN [Concomitant]
     Active Substance: METFORMIN HYDROCHLORIDE
     Indication: Product used for unknown indication
     Dosage: UNK, 3 TIMES A DAY (500)
     Route: 065
  10. NOVORAPID [Concomitant]
     Active Substance: INSULIN ASPART
     Indication: Product used for unknown indication
     Dosage: UNK (8 IN THE MORNING, 6 AT NOON, AND 4 IN THE EVENING )
     Route: 065

REACTIONS (4)
  - Drug hypersensitivity [Recovered/Resolved]
  - Fatigue [Recovered/Resolved]
  - Neuropathy peripheral [Unknown]
  - Rash pruritic [Recovered/Resolved]

NARRATIVE: CASE EVENT DATE: 20220113
